FAERS Safety Report 17307696 (Version 2)
Quarter: 2020Q1

REPORT INFORMATION
  Report Type: Spontaneous
  Country: US (occurrence: US)
  Receive Date: 20200123
  Receipt Date: 20200306
  Transmission Date: 20200409
  Serious: No
  Sender: FDA-Public Use
  Company Number: US-GLAXOSMITHKLINE-US2020011355

PATIENT
  Age: 49 Year
  Sex: Female
  Weight: 127.01 kg

DRUGS (10)
  1. JANUVIA TABLET [Concomitant]
     Indication: PRODUCT USED FOR UNKNOWN INDICATION
     Dosage: 100 MG, 1D
     Route: 048
  2. FOLIC ACID TABLET [Concomitant]
     Active Substance: FOLIC ACID
     Indication: PRODUCT USED FOR UNKNOWN INDICATION
     Dosage: 1 MG, 1D
     Route: 048
  3. BENLYSTA [Suspect]
     Active Substance: BELIMUMAB
     Indication: SYSTEMIC LUPUS ERYTHEMATOSUS
     Dosage: UNK
     Route: 058
  4. GLIMEPIRIDE TABLET [Concomitant]
     Active Substance: GLIMEPIRIDE
     Indication: PRODUCT USED FOR UNKNOWN INDICATION
     Dosage: 1 MG, 1D
     Route: 048
  5. PROTONIX TABLET [Concomitant]
     Indication: PRODUCT USED FOR UNKNOWN INDICATION
     Dosage: 40 MG, 1D
     Route: 048
  6. ZEBETA TABLET [Concomitant]
     Indication: PRODUCT USED FOR UNKNOWN INDICATION
     Dosage: 10 MG, 1D
     Route: 048
  7. OMEGA 3 CAPSULE [Concomitant]
     Active Substance: FISH OIL\OMEGA-3 FATTY ACIDS
     Indication: PRODUCT USED FOR UNKNOWN INDICATION
     Dosage: 1000 MG, 1D
     Route: 048
  8. METHOTREXATE. [Concomitant]
     Active Substance: METHOTREXATE
     Indication: PRODUCT USED FOR UNKNOWN INDICATION
     Dosage: UNK
     Route: 065
  9. CLARITINE TABLET [Concomitant]
     Indication: PRODUCT USED FOR UNKNOWN INDICATION
     Dosage: 10 MG, 1D
     Route: 048
  10. EFFEXOR TABLET [Concomitant]
     Indication: PRODUCT USED FOR UNKNOWN INDICATION
     Dosage: 225 MG, 1D
     Route: 048

REACTIONS (17)
  - Fibromyalgia [Unknown]
  - Wrong technique in device usage process [Recovered/Resolved]
  - Musculoskeletal stiffness [Unknown]
  - Pain [Unknown]
  - Skin warm [Unknown]
  - Arthralgia [Unknown]
  - Limb discomfort [Unknown]
  - Parotitis [Unknown]
  - Hypoaesthesia [Unknown]
  - Exposure via skin contact [Recovered/Resolved]
  - Muscular weakness [Unknown]
  - Antinuclear antibody positive [Unknown]
  - Protein total increased [Unknown]
  - Nausea [Unknown]
  - Accidental exposure to product [Recovered/Resolved]
  - Overdose [Not Recovered/Not Resolved]
  - Dry skin [Unknown]

NARRATIVE: CASE EVENT DATE: 20200114
